FAERS Safety Report 12935271 (Version 1)
Quarter: 2016Q4

REPORT INFORMATION
  Report Type: Spontaneous
  Country: US (occurrence: US)
  Receive Date: 20161114
  Receipt Date: 20161114
  Transmission Date: 20170207
  Serious: No
  Sender: FDA-Public Use
  Company Number: US-JAZZ-2016-US-018442

PATIENT
  Sex: Female

DRUGS (21)
  1. FISH OIL                           /00492901/ [Concomitant]
     Active Substance: COD LIVER OIL
  2. HYDROCHLOROTHIAZIDE. [Concomitant]
     Active Substance: HYDROCHLOROTHIAZIDE
  3. PREGNENOLONE [Concomitant]
     Active Substance: PREGNENOLONE
  4. DHEA [Concomitant]
     Active Substance: PRASTERONE
  5. MINOCYCLINE [Concomitant]
     Active Substance: MINOCYCLINE\MINOCYCLINE HYDROCHLORIDE
  6. BIOTIN [Concomitant]
     Active Substance: BIOTIN
  7. MULTIVITAMINS                      /00116001/ [Concomitant]
  8. XYREM [Suspect]
     Active Substance: SODIUM OXYBATE
     Indication: NARCOLEPSY
     Dosage: 3 G, BID
     Route: 048
     Dates: start: 201205, end: 201206
  9. XYREM [Suspect]
     Active Substance: SODIUM OXYBATE
     Dosage: 4.5 G, BID
     Route: 048
     Dates: start: 201210
  10. ACCUTANE [Concomitant]
     Active Substance: ISOTRETINOIN
  11. PROMETRIUM [Concomitant]
     Active Substance: PROGESTERONE
  12. CONCERTA [Concomitant]
     Active Substance: METHYLPHENIDATE HYDROCHLORIDE
  13. SPIRONOLACTONE. [Concomitant]
     Active Substance: SPIRONOLACTONE
  14. VITAMIN B C COMPLEX [Concomitant]
  15. XYREM [Suspect]
     Active Substance: SODIUM OXYBATE
     Indication: CATAPLEXY
     Dosage: 3.75 G, BID
     Dates: start: 201206, end: 201210
  16. LEVOTHYROXINE                      /00068002/ [Concomitant]
     Active Substance: LEVOTHYROXINE
  17. CALCIUM                            /00060701/ [Concomitant]
     Active Substance: CALCIUM
  18. MAGNESIUM [Concomitant]
     Active Substance: MAGNESIUM
  19. METHYLPHENIDATE. [Concomitant]
     Active Substance: METHYLPHENIDATE
  20. VITAMIN D                          /00107901/ [Concomitant]
     Active Substance: ERGOCALCIFEROL
  21. NUVIGIL [Concomitant]
     Active Substance: ARMODAFINIL

REACTIONS (1)
  - Back pain [Not Recovered/Not Resolved]
